FAERS Safety Report 22303842 (Version 3)
Quarter: 2023Q4

REPORT INFORMATION
  Report Type: Report from Study
  Country: US (occurrence: US)
  Receive Date: 20230510
  Receipt Date: 20231114
  Transmission Date: 20240110
  Serious: Yes (Other)
  Sender: FDA-Public Use
  Company Number: US-002147023-NVSC2023US103869

PATIENT
  Age: 37 Year
  Sex: Female

DRUGS (2)
  1. KESIMPTA [Suspect]
     Active Substance: OFATUMUMAB
     Indication: Product used for unknown indication
     Dosage: 1 DOSAGE FORM, QW (20/0.4 MG/ML)
     Route: 030
     Dates: start: 20230425
  2. KESIMPTA [Suspect]
     Active Substance: OFATUMUMAB
     Dosage: 1 DOSAGE FORM, QW (20/0.4 MG/ML)
     Route: 030
     Dates: start: 20230502

REACTIONS (5)
  - Somnolence [Unknown]
  - Abdominal pain [Unknown]
  - Diarrhoea [Unknown]
  - Incorrect route of product administration [Unknown]
  - Drug ineffective [Unknown]

NARRATIVE: CASE EVENT DATE: 20230425
